FAERS Safety Report 14141627 (Version 1)
Quarter: 2017Q4

REPORT INFORMATION
  Report Type: Spontaneous
  Country: US (occurrence: US)
  Receive Date: 20171029
  Receipt Date: 20171029
  Transmission Date: 20180321
  Serious: No
  Sender: FDA-Public Use
  Company Number: None

PATIENT
  Sex: Female
  Weight: 85.5 kg

DRUGS (15)
  1. SALSALATE. [Concomitant]
     Active Substance: SALSALATE
  2. OCUVITE [Concomitant]
     Active Substance: VITAMINS
  3. VITAMIN D3 [Concomitant]
     Active Substance: CHOLECALCIFEROL
  4. RESTASIS [Concomitant]
     Active Substance: CYCLOSPORINE
  5. L-LYSINE [Concomitant]
     Active Substance: LYSINE
  6. ATORVASTATIN [Concomitant]
     Active Substance: ATORVASTATIN
  7. CALCIUM [Concomitant]
     Active Substance: CALCIUM
  8. MYRBETRIQ [Suspect]
     Active Substance: MIRABEGRON
     Indication: BLADDER DISORDER
     Dosage: ?          QUANTITY:1 TABLET(S);?
     Route: 048
     Dates: start: 20170908, end: 20171018
  9. CRANBERRY. [Concomitant]
     Active Substance: CRANBERRY
  10. VIT B [Concomitant]
     Active Substance: VITAMIN B
  11. VIVISCAL [Concomitant]
  12. VALACYCLOVIR (VALTREX) [Concomitant]
  13. COLON CLEANSER [Concomitant]
  14. LEVOTHYROXIN [Concomitant]
     Active Substance: LEVOTHYROXINE
  15. OSTEO BI-FLEX [Concomitant]
     Active Substance: CHONDROITIN SULFATE A\GLUCOSAMINE

REACTIONS (4)
  - Stomatitis [None]
  - Lip swelling [None]
  - Cheilitis [None]
  - Mouth swelling [None]

NARRATIVE: CASE EVENT DATE: 20170908
